FAERS Safety Report 10233613 (Version 4)
Quarter: 2014Q3

REPORT INFORMATION
  Report Type: Spontaneous
  Country: US (occurrence: US)
  Receive Date: 20140612
  Receipt Date: 20140801
  Transmission Date: 20150326
  Serious: Yes (Other)
  Sender: FDA-Public Use
  Company Number: US-BAYER-2014-087298

PATIENT
  Age: 19 Year
  Sex: Female
  Weight: 102 kg

DRUGS (2)
  1. MIRENA [Suspect]
     Active Substance: LEVONORGESTREL
     Indication: MENORRHAGIA
  2. MIRENA [Suspect]
     Active Substance: LEVONORGESTREL
     Indication: CONTRACEPTION
     Dosage: 20 MCG/24HR, CONT
     Route: 015
     Dates: start: 20120329

REACTIONS (3)
  - Drug ineffective [None]
  - Amenorrhoea [None]
  - Ectopic pregnancy with contraceptive device [None]

NARRATIVE: CASE EVENT DATE: 201204
